FAERS Safety Report 14453158 (Version 2)
Quarter: 2018Q1

REPORT INFORMATION
  Report Type: Spontaneous
  Country: CH (occurrence: CH)
  Receive Date: 20180129
  Receipt Date: 20180130
  Transmission Date: 20180509
  Serious: Yes (Hospitalization, Other)
  Sender: FDA-Public Use
  Company Number: CH-PFIZER INC-2018036878

PATIENT
  Age: 48 Year
  Sex: Male
  Weight: 75 kg

DRUGS (7)
  1. VANCOMYCIN [Suspect]
     Active Substance: VANCOMYCIN
     Indication: BRAIN ABSCESS
     Dosage: 1000 MG, 2X/DAY
     Route: 041
     Dates: start: 20171108, end: 20171114
  2. CO-AMOXICILLIN [Suspect]
     Active Substance: AMOXICILLIN\CLAVULANATE POTASSIUM
     Indication: BRAIN ABSCESS
     Dosage: 2000 MG, 3X/DAY
     Route: 048
     Dates: start: 20171122, end: 20171128
  3. ORFIRIL [Suspect]
     Active Substance: VALPROATE SODIUM
     Indication: EPILEPSY
     Dosage: 500 MG, 2X/DAY
     Route: 048
     Dates: start: 20171101, end: 20171226
  4. TAMIFLU [Suspect]
     Active Substance: OSELTAMIVIR PHOSPHATE
     Indication: INFLUENZA
     Dosage: 150 MG, UNK
     Route: 048
     Dates: start: 20171130, end: 20171206
  5. NEXIUM [Suspect]
     Active Substance: ESOMEPRAZOLE MAGNESIUM
     Indication: PROPHYLAXIS
     Dosage: 40 MG, UNK
     Route: 048
     Dates: start: 20171109, end: 20171225
  6. PODOMEXEF [Suspect]
     Active Substance: CEFPODOXIME PROXETIL
     Indication: BRAIN ABSCESS
     Dosage: 200 MG, 2X/DAY
     Route: 048
     Dates: start: 20171031, end: 20171108
  7. VANCOMYCIN [Suspect]
     Active Substance: VANCOMYCIN
     Dosage: 1000 MG, 2X/DAY
     Route: 041
     Dates: start: 20171130, end: 20171225

REACTIONS (2)
  - Drug reaction with eosinophilia and systemic symptoms [Recovered/Resolved]
  - Rash morbilliform [Recovered/Resolved]

NARRATIVE: CASE EVENT DATE: 20171108
